FAERS Safety Report 9144140 (Version 1)
Quarter: 2013Q1

REPORT INFORMATION
  Report Type: Spontaneous
  Country: FR (occurrence: FR)
  Receive Date: 20130306
  Receipt Date: 20130306
  Transmission Date: 20140127
  Serious: Yes (Hospitalization)
  Sender: FDA-Public Use
  Company Number: FR-ASTRAZENECA-2013SE13374

PATIENT
  Age: 38 Year
  Sex: Male

DRUGS (27)
  1. MERONEM [Suspect]
     Route: 042
     Dates: start: 20130115, end: 20130124
  2. ZYVOXID [Suspect]
     Route: 065
     Dates: start: 20130115, end: 20130124
  3. UMULINE [Concomitant]
     Dates: start: 20121231
  4. MIDAZOLAM [Concomitant]
     Dates: start: 20121231, end: 20130118
  5. SUFENTA [Concomitant]
     Dates: start: 20121231, end: 20130123
  6. CEFTRIAXONE [Concomitant]
     Dates: start: 20121231, end: 20130103
  7. METRONIDAZOLE [Concomitant]
     Dates: start: 20121231, end: 20130102
  8. ACUPAN [Concomitant]
     Dates: start: 20121231, end: 20130102
  9. CALCIPARINE [Concomitant]
     Dates: start: 20130101, end: 20130102
  10. NORADRENALINE [Concomitant]
     Dates: start: 20130101
  11. PANTOPRAZOLE [Concomitant]
     Dates: start: 20130101
  12. VECTARION [Concomitant]
     Dates: start: 20130101
  13. LASILIX [Concomitant]
     Dates: start: 20130101
  14. LEVOCARNIL [Concomitant]
     Dates: start: 20130101
  15. CLOTTAFACT [Concomitant]
     Dates: start: 20130101, end: 20130101
  16. HEPARINE SODIQUE [Concomitant]
     Dates: start: 20130102
  17. FLUIMICIL [Concomitant]
     Dates: start: 20130103, end: 20130118
  18. TAZOCILLINE [Concomitant]
     Dates: start: 20130103, end: 20130108
  19. AMIKACINE [Concomitant]
     Dates: start: 20130103, end: 20130108
  20. FLUCONAZOLE [Concomitant]
     Dates: start: 20130103, end: 20130118
  21. NIMBEX [Concomitant]
     Dates: start: 20130104, end: 20130118
  22. HEMISUCCINATE D^HYDROCORTISONE [Concomitant]
     Dates: start: 20130104, end: 20130116
  23. ADRENALINE [Concomitant]
     Dates: start: 20130104, end: 20130106
  24. PERFALGAN [Concomitant]
     Dates: start: 20130114, end: 20130116
  25. ACLOTINE [Concomitant]
     Dates: start: 20130105, end: 20130105
  26. GENTAMICINE [Concomitant]
     Dosage: ONCE/SINGLE ADMINISTRATION
     Dates: start: 20130115, end: 20130115
  27. CIPROFLOXACINE [Concomitant]
     Dosage: ONCE/SINGLE ADMINISTRATION
     Dates: start: 20130117, end: 20130117

REACTIONS (1)
  - Hepatitis cholestatic [Recovering/Resolving]
